FAERS Safety Report 20646480 (Version 4)
Quarter: 2024Q1

REPORT INFORMATION
  Report Type: Spontaneous
  Country: US (occurrence: US)
  Receive Date: 20220329
  Receipt Date: 20240112
  Transmission Date: 20240410
  Serious: Yes (Hospitalization, Other)
  Sender: FDA-Public Use
  Company Number: US-GILEAD-2022-0575220

PATIENT
  Age: 61 Year
  Sex: Male
  Weight: 102 kg

DRUGS (22)
  1. TRUVADA [Suspect]
     Active Substance: EMTRICITABINE\TENOFOVIR DISOPROXIL FUMARATE
     Indication: Prophylaxis against HIV infection
     Dosage: UNK
     Route: 048
     Dates: start: 2018
  2. TRUVADA [Suspect]
     Active Substance: EMTRICITABINE\TENOFOVIR DISOPROXIL FUMARATE
     Dosage: UNK
     Route: 048
     Dates: start: 2015, end: 201908
  3. TRUVADA [Suspect]
     Active Substance: EMTRICITABINE\TENOFOVIR DISOPROXIL FUMARATE
     Dosage: UNK
     Route: 048
     Dates: start: 2015, end: 201905
  4. TYLENOL [Concomitant]
     Active Substance: ACETAMINOPHEN
  5. DILTIAZEM [Concomitant]
     Active Substance: DILTIAZEM
  6. CLONIDINE [Concomitant]
     Active Substance: CLONIDINE
  7. SIMVASTATIN [Concomitant]
     Active Substance: SIMVASTATIN
  8. FERROUS SULFATE [Concomitant]
     Active Substance: FERROUS SULFATE
  9. METHYLPHENIDATE [Concomitant]
     Active Substance: METHYLPHENIDATE
  10. TADALAFIL [Concomitant]
     Active Substance: TADALAFIL
  11. PANTOPRAZOLE [Concomitant]
     Active Substance: PANTOPRAZOLE
  12. TRAZODONE [Concomitant]
     Active Substance: TRAZODONE HYDROCHLORIDE
  13. ALLOPURINOL [Concomitant]
     Active Substance: ALLOPURINOL
  14. ALPRAZOLAM [Concomitant]
     Active Substance: ALPRAZOLAM
  15. METFORMIN [Concomitant]
     Active Substance: METFORMIN HYDROCHLORIDE
  16. FOLIC ACID [Concomitant]
     Active Substance: FOLIC ACID
  17. VRAYLAR [Concomitant]
     Active Substance: CARIPRAZINE
  18. FUROSEMIDE [Concomitant]
     Active Substance: FUROSEMIDE
  19. LAMOTRIGINE [Concomitant]
     Active Substance: LAMOTRIGINE
  20. FLUVOXAMINE [Concomitant]
     Active Substance: FLUVOXAMINE
  21. POTASSIUM CHLORIDE [Concomitant]
     Active Substance: POTASSIUM CHLORIDE
  22. SILDENAFIL [Concomitant]
     Active Substance: SILDENAFIL

REACTIONS (10)
  - Hyperphosphataemia [Recovered/Resolved]
  - Metabolic acidosis [Recovered/Resolved]
  - Acute kidney injury [Recovered/Resolved]
  - Hyperkalaemia [Recovered/Resolved]
  - Renal failure [Unknown]
  - Pain [Not Recovered/Not Resolved]
  - Anxiety [Not Recovered/Not Resolved]
  - Emotional distress [Not Recovered/Not Resolved]
  - Anhedonia [Not Recovered/Not Resolved]
  - Loss of personal independence in daily activities [Unknown]

NARRATIVE: CASE EVENT DATE: 20190401
